FAERS Safety Report 13030156 (Version 1)
Quarter: 2016Q4

REPORT INFORMATION
  Report Type: Spontaneous
  Country: US (occurrence: US)
  Receive Date: 20161215
  Receipt Date: 20161215
  Transmission Date: 20170207
  Serious: No
  Sender: FDA-Public Use
  Company Number: US-TEVA-714866ACC

PATIENT
  Age: 33 Year
  Sex: Female
  Weight: 55.39 kg

DRUGS (2)
  1. VITAMINS [Concomitant]
     Active Substance: VITAMINS
  2. PARAGARD T 380A [Suspect]
     Active Substance: COPPER
     Indication: CONTRACEPTION
     Dates: start: 20161114, end: 20161114

REACTIONS (2)
  - Procedural pain [Recovered/Resolved]
  - Pelvic pain [Recovered/Resolved]

NARRATIVE: CASE EVENT DATE: 20161114
